FAERS Safety Report 22018554 (Version 1)
Quarter: 2023Q1

REPORT INFORMATION
  Report Type: Spontaneous
  Country: US (occurrence: US)
  Receive Date: 20230222
  Receipt Date: 20230222
  Transmission Date: 20230418
  Serious: Yes (Other)
  Sender: FDA-Public Use
  Company Number: US-ELI_LILLY_AND_COMPANY-US202302006728

PATIENT
  Age: 92 Year
  Sex: Female

DRUGS (1)
  1. ZYPREXA [Suspect]
     Active Substance: OLANZAPINE
     Indication: Product used for unknown indication
     Dosage: 10 MG, UNKNOWN
     Route: 030
     Dates: start: 20230206

REACTIONS (5)
  - Seizure [Recovered/Resolved]
  - Body temperature decreased [Recovered/Resolved]
  - Sleep disorder [Not Recovered/Not Resolved]
  - Swollen tongue [Unknown]
  - Memory impairment [Not Recovered/Not Resolved]

NARRATIVE: CASE EVENT DATE: 20230206
